FAERS Safety Report 11185675 (Version 3)
Quarter: 2015Q4

REPORT INFORMATION
  Report Type: Spontaneous
  Country: US (occurrence: US)
  Receive Date: 20150612
  Receipt Date: 20151030
  Transmission Date: 20160304
  Serious: Yes (Other)
  Sender: FDA-Public Use
  Company Number: US-ASTRAZENECA-2015SE54164

PATIENT
  Age: 62 Year
  Sex: Female
  Weight: 62.6 kg

DRUGS (12)
  1. ARIMIDEX [Suspect]
     Active Substance: ANASTROZOLE
     Indication: BREAST CANCER
     Route: 048
     Dates: start: 201502
  2. PROGRAFT [Suspect]
     Active Substance: TACROLIMUS
     Indication: IMMUNOSUPPRESSANT DRUG THERAPY
     Dosage: TWO TIMES A DAY
     Route: 065
  3. INSULIN HUMULIN REGULAR [Concomitant]
     Indication: DIABETES MELLITUS
     Route: 030
  4. PROGRAFT [Suspect]
     Active Substance: TACROLIMUS
     Indication: IMMUNOSUPPRESSANT DRUG THERAPY
     Route: 065
  5. ARIMIDEX [Suspect]
     Active Substance: ANASTROZOLE
     Indication: BREAST CANCER
     Route: 048
     Dates: start: 2015
  6. MYFORTIC [Concomitant]
     Active Substance: MYCOPHENOLATE SODIUM
     Indication: IMMUNOSUPPRESSANT DRUG THERAPY
     Route: 065
  7. PROGRAFT [Suspect]
     Active Substance: TACROLIMUS
     Indication: IMMUNOSUPPRESSANT DRUG THERAPY
     Route: 065
     Dates: start: 2011
  8. PROGRAFT [Suspect]
     Active Substance: TACROLIMUS
     Indication: IMMUNOSUPPRESSANT DRUG THERAPY
     Route: 065
     Dates: start: 2011
  9. VITAMIN D [Concomitant]
     Active Substance: CHOLECALCIFEROL
     Indication: OSTEOPOROSIS
     Dosage: DAILY
     Route: 065
  10. PROGRAFT [Suspect]
     Active Substance: TACROLIMUS
     Indication: IMMUNOSUPPRESSANT DRUG THERAPY
     Route: 065
  11. ALLOPURINOL. [Concomitant]
     Active Substance: ALLOPURINOL
     Route: 065
  12. INSULIN HUMULIN N [Concomitant]
     Indication: DIABETES MELLITUS
     Dosage: DAILY
     Route: 030

REACTIONS (11)
  - Sleep disorder due to general medical condition, insomnia type [Unknown]
  - Diarrhoea [Unknown]
  - Blood cholesterol decreased [Unknown]
  - Drug level increased [Unknown]
  - Visual impairment [Unknown]
  - Dizziness [Unknown]
  - Headache [Unknown]
  - Breast cancer female [Unknown]
  - Blood glucose decreased [Unknown]
  - Eye oedema [Unknown]
  - Abdominal pain upper [Unknown]

NARRATIVE: CASE EVENT DATE: 2015
